FAERS Safety Report 8367549-0 (Version None)
Quarter: 2012Q2

REPORT INFORMATION
  Report Type: 
  Country: None (occurrence: None)
  Receive Date: 20120517
  Receipt Date: 20120514
  Transmission Date: 20120825
  Serious: Yes (Other)
  Sender: FDA-Public Use
  Company Number: US-PFIZER INC-2012105462

PATIENT
  Sex: Male

DRUGS (1)
  1. NEURONTIN [Suspect]
     Dosage: 300 MG, 2X/DAY
     Route: 048

REACTIONS (7)
  - HYPERTENSION [None]
  - ROAD TRAFFIC ACCIDENT [None]
  - DEPRESSION [None]
  - GAIT DISTURBANCE [None]
  - NECK INJURY [None]
  - BACK INJURY [None]
  - PAIN [None]
